FAERS Safety Report 4937075-7 (Version None)
Quarter: 2006Q1

REPORT INFORMATION
  Report Type: 
  Country: None (occurrence: None)
  Receive Date: 20060307
  Receipt Date: 20060307
  Transmission Date: 20060701
  Serious: Yes (Death)
  Sender: FDA-Public Use
  Company Number: None

PATIENT
  Age: 80 Year
  Sex: Male
  Weight: 68.0396 kg

DRUGS (1)
  1. HALDOL [Suspect]
     Indication: ANXIETY
     Dosage: FROM .5 TID TO 2.5 MG TID
     Dates: start: 20050503, end: 20050605

REACTIONS (5)
  - ACTIVITIES OF DAILY LIVING IMPAIRED [None]
  - GENERAL PHYSICAL CONDITION ABNORMAL [None]
  - IMMOBILE [None]
  - ORAL INTAKE REDUCED [None]
  - RESTLESSNESS [None]
